FAERS Safety Report 7781714-2 (Version None)
Quarter: 2011Q3

REPORT INFORMATION
  Report Type: 
  Country: None (occurrence: None)
  Receive Date: 20110927
  Receipt Date: 20100825
  Transmission Date: 20111222
  Serious: Yes (Hospitalization)
  Sender: FDA-Public Use
  Company Number: US-GLAXOSMITHKLINE-A0878561A

PATIENT
  Age: 76 Year
  Sex: Male
  Weight: 63.6 kg

DRUGS (12)
  1. AVANDIA [Suspect]
     Indication: CARDIAC DISORDER
     Dosage: 4MG PER DAY
     Dates: start: 20050101, end: 20080101
  2. LOVASTATIN [Concomitant]
  3. ZETIA [Concomitant]
  4. ACIPHEX [Concomitant]
  5. PRIMIDONE [Concomitant]
  6. BUPROPION [Concomitant]
  7. LISINOPRIL [Concomitant]
  8. GLIPIZIDE [Concomitant]
  9. LEVOTHYROXINE SODIUM [Concomitant]
  10. METOPROLOL TARTRATE [Concomitant]
  11. NIASPAN [Concomitant]
  12. BENICAR [Concomitant]

REACTIONS (2)
  - ANGINA PECTORIS [None]
  - CARDIAC FAILURE CONGESTIVE [None]
